FAERS Safety Report 9252154 (Version 1)
Quarter: 2013Q2

REPORT INFORMATION
  Report Type: Spontaneous
  Country: US (occurrence: US)
  Receive Date: 20130424
  Receipt Date: 20130424
  Transmission Date: 20140414
  Serious: Yes (Life-Threatening, Hospitalization, Other)
  Sender: FDA-Public Use
  Company Number: US-PFIZER INC-2013124628

PATIENT
  Age: 79 Year
  Sex: Male
  Weight: 58.05 kg

DRUGS (12)
  1. LIPITOR [Suspect]
     Indication: BLOOD CHOLESTEROL INCREASED
     Dosage: 80 MG, UNK
     Route: 048
  2. LIPITOR [Suspect]
     Indication: CORONARY ARTERY DISEASE
  3. ATORVASTATIN CALCIUM [Suspect]
     Indication: BLOOD CHOLESTEROL INCREASED
     Dosage: UNK
  4. ATORVASTATIN CALCIUM [Suspect]
     Indication: CORONARY ARTERY DISEASE
  5. OMEPRAZOLE [Concomitant]
     Dosage: 20 MG, UNK
  6. ASPIRIN [Concomitant]
     Dosage: 81 MG, UNK
  7. DIGOXIN [Concomitant]
     Dosage: UNK
  8. LOMOTIL [Concomitant]
     Dosage: UNK, 3X/DAY
  9. NORVASC [Concomitant]
     Dosage: 5 MG, UNK
  10. PRADAXA [Concomitant]
     Dosage: UNK
  11. IMDUR [Concomitant]
     Dosage: UNK
  12. CHOLESTYRAMINE [Concomitant]
     Dosage: 4 MG, UNK

REACTIONS (13)
  - Dehydration [Unknown]
  - Diarrhoea [Unknown]
  - Renal failure acute [Unknown]
  - Weight decreased [Unknown]
  - Haemoglobin decreased [Unknown]
  - Blood potassium decreased [Unknown]
  - Blood sodium increased [Unknown]
  - Blood chloride increased [Unknown]
  - Blood bicarbonate decreased [Unknown]
  - Blood urea increased [Unknown]
  - Blood creatinine increased [Unknown]
  - Blood magnesium decreased [Unknown]
  - Anion gap increased [Unknown]
